FAERS Safety Report 24738105 (Version 1)
Quarter: 2024Q4

REPORT INFORMATION
  Report Type: Spontaneous
  Country: JP (occurrence: JP)
  Receive Date: 20241216
  Receipt Date: 20241216
  Transmission Date: 20250115
  Serious: Yes (Death, Life-Threatening, Hospitalization)
  Sender: STRIDES
  Company Number: None

PATIENT
  Age: 4 Decade
  Sex: Male

DRUGS (4)
  1. PREDNISOLONE [Suspect]
     Active Substance: PREDNISOLONE
     Indication: Lepromatous leprosy
     Dosage: 15 MILLIGRAM, QD
     Route: 065
  2. DAPSONE [Concomitant]
     Active Substance: DAPSONE
     Indication: Lepromatous leprosy
     Dosage: UNK
     Route: 065
  3. RIFAMPIN [Concomitant]
     Active Substance: RIFAMPIN
     Indication: Lepromatous leprosy
     Dosage: UNK
     Route: 065
  4. CLOFAZIMINE [Concomitant]
     Active Substance: CLOFAZIMINE
     Indication: Lepromatous leprosy
     Dosage: UNK
     Route: 065

REACTIONS (9)
  - Disseminated strongyloidiasis [Fatal]
  - Disseminated intravascular coagulation [Fatal]
  - Ileus paralytic [Fatal]
  - Acute respiratory distress syndrome [Fatal]
  - Pneumonitis aspiration [Fatal]
  - Acute kidney injury [Fatal]
  - Stenotrophomonas bacteraemia [Fatal]
  - Multiple organ dysfunction syndrome [Fatal]
  - Chronic gastritis [Fatal]
